FAERS Safety Report 7471272-4 (Version None)
Quarter: 2011Q2

REPORT INFORMATION
  Report Type: 
  Country: None (occurrence: None)
  Receive Date: 20110510
  Receipt Date: 20110505
  Transmission Date: 20111010
  Serious: Yes (Hospitalization)
  Sender: FDA-Public Use
  Company Number: FR-ABBOTT-11P-056-0723761-00

PATIENT
  Age: 64 Year
  Sex: Female

DRUGS (2)
  1. FENOFIBRATE [Suspect]
     Indication: HYPERCHOLESTEROLAEMIA
     Dosage: DAILY DOSE: 1 DOSAGE FORM
     Route: 065
  2. FENOFIBRATE [Suspect]
     Route: 048
     Dates: end: 20110101

REACTIONS (5)
  - OEDEMA PERIPHERAL [None]
  - FATIGUE [None]
  - FULL BLOOD COUNT ABNORMAL [None]
  - LIVER FUNCTION TEST ABNORMAL [None]
  - MYALGIA [None]
